FAERS Safety Report 9310430 (Version 1)
Quarter: 2013Q2

REPORT INFORMATION
  Report Type: Report from Study
  Country: MX (occurrence: MX)
  Receive Date: 20130527
  Receipt Date: 20130527
  Transmission Date: 20140414
  Serious: Yes (Other)
  Sender: FDA-Public Use
  Company Number: PHHY2011MX07703

PATIENT
  Sex: Female

DRUGS (3)
  1. RASILEZ [Suspect]
     Indication: HYPERTENSION
     Dosage: 1 TABLET (300 MG) PER DAY
  2. DIOVAN [Suspect]
     Dosage: 160 MG, UNK
  3. PREXIGE [Suspect]
     Dosage: 400 MG, UNK

REACTIONS (2)
  - Joint injury [Unknown]
  - Joint dislocation [Unknown]
